FAERS Safety Report 16265755 (Version 4)
Quarter: 2019Q3

REPORT INFORMATION
  Report Type: Spontaneous
  Country: JP (occurrence: JP)
  Receive Date: 20190502
  Receipt Date: 20190830
  Transmission Date: 20191004
  Serious: Yes (Hospitalization)
  Sender: FDA-Public Use
  Company Number: JP-ASTRAZENECA-2019SE43310

PATIENT
  Age: 73 Year
  Sex: Female
  Weight: 44 kg

DRUGS (4)
  1. PANVITAN [Concomitant]
     Active Substance: VITAMINS
     Dosage: DOSE UNKNOWN
     Route: 065
     Dates: start: 20190306, end: 20190308
  2. HYPADIL [Concomitant]
     Active Substance: NIPRADILOL
     Dosage: DOSE UNKNOWN
     Route: 047
  3. TAGRISSO [Suspect]
     Active Substance: OSIMERTINIB
     Indication: NON-SMALL CELL LUNG CANCER
     Route: 048
     Dates: start: 20180815, end: 20190309
  4. FML [Concomitant]
     Active Substance: FLUOROMETHOLONE
     Dosage: DOSE UNKNOWN
     Route: 047

REACTIONS (2)
  - Ejection fraction decreased [Recovering/Resolving]
  - Cardiac failure congestive [Recovering/Resolving]

NARRATIVE: CASE EVENT DATE: 20190306
